FAERS Safety Report 7331511-7 (Version None)
Quarter: 2011Q1

REPORT INFORMATION
  Report Type: 
  Country: None (occurrence: None)
  Receive Date: 20110228
  Receipt Date: 20110228
  Transmission Date: 20110831
  Serious: Yes (Other)
  Sender: FDA-Public Use
  Company Number: None

PATIENT
  Sex: Female
  Weight: 59.8748 kg

DRUGS (1)
  1. REMERON SOLTAB [Suspect]
     Dosage: 1/2 TO 1 PILL EVERY NIGHT PO
     Route: 048
     Dates: start: 20101127, end: 20110215

REACTIONS (2)
  - SENSORY DISTURBANCE [None]
  - LOSS OF LIBIDO [None]
